FAERS Safety Report 24452762 (Version 1)
Quarter: 2024Q4

REPORT INFORMATION
  Report Type: Spontaneous
  Country: US (occurrence: US)
  Receive Date: 20241017
  Receipt Date: 20241017
  Transmission Date: 20250115
  Serious: Yes (Death, Hospitalization, Other)
  Sender: PHARMACEUTICAL ASSOC
  Company Number: US-PAIPHARMA-2024-US-056266

PATIENT
  Sex: Male

DRUGS (2)
  1. LEVETIRACETAM [Suspect]
     Active Substance: LEVETIRACETAM
     Indication: Seizure
  2. METHOTREXATE [Suspect]
     Active Substance: METHOTREXATE
     Indication: Psoriatic arthropathy
     Dosage: 2.5 MG DAILY 6 DAYS PER WEEK

REACTIONS (2)
  - Drug interaction [Fatal]
  - Toxicity to various agents [Fatal]
